FAERS Safety Report 12437711 (Version 1)
Quarter: 2016Q2

REPORT INFORMATION
  Report Type: Report from Study
  Country: US (occurrence: US)
  Receive Date: 20160606
  Receipt Date: 20160606
  Transmission Date: 20160815
  Serious: No
  Sender: FDA-Public Use
  Company Number: US-MDT-ADR-2016-00216

PATIENT
  Age: 55 Year
  Sex: Female

DRUGS (6)
  1. BACLOFEN. [Suspect]
     Active Substance: BACLOFEN
     Dosage: 618.5 MCG/DAY
     Dates: start: 20150818, end: 20150915
  2. CNS-HYDRO [Suspect]
     Active Substance: UNSPECIFIED INGREDIENT
     Dosage: 1.8017 MG/DAY
     Dates: start: 20150915, end: 20160916
  3. CNS-HYDRO [Suspect]
     Active Substance: UNSPECIFIED INGREDIENT
     Dosage: 2.2001 MG/DAY
     Dates: start: 20150818, end: 20150915
  4. BUPIVACAINE. [Suspect]
     Active Substance: BUPIVACAINE
     Dosage: 12.512 MG/DAY
     Dates: start: 20150915, end: 20160916
  5. BUPIVACAINE. [Suspect]
     Active Substance: BUPIVACAINE
     Dosage: 15.279 MG/DAY
     Dates: start: 20150818, end: 20150915
  6. BACLOFEN. [Suspect]
     Active Substance: BACLOFEN
     Dosage: 2.2001 MCG/DAY
     Dates: start: 20150915, end: 20160916

REACTIONS (4)
  - Tinnitus [Recovered/Resolved]
  - Confusional state [Recovered/Resolved]
  - Dizziness [Recovered/Resolved]
  - Palpitations [Recovered/Resolved]

NARRATIVE: CASE EVENT DATE: 20150916
